FAERS Safety Report 9393877 (Version 2)
Quarter: 2013Q4

REPORT INFORMATION
  Report Type: Spontaneous
  Country: US (occurrence: US)
  Receive Date: 20130710
  Receipt Date: 20131127
  Transmission Date: 20140711
  Serious: No
  Sender: FDA-Public Use
  Company Number: US-009507513-1306USA004345

PATIENT
  Age: 3 Year
  Sex: Female
  Weight: 18.14 kg

DRUGS (4)
  1. CLARITIN CHEWABLE TABLETS [Suspect]
     Indication: SEASONAL ALLERGY
     Dosage: 5 MG, ONCE
     Route: 048
     Dates: start: 2013, end: 2013
  2. CLARITIN CHEWABLE TABLETS [Suspect]
     Indication: RHINORRHOEA
  3. CLARITIN CHEWABLE TABLETS [Suspect]
     Indication: LACRIMATION INCREASED
  4. CLARITIN CHEWABLE TABLETS [Suspect]
     Indication: EYE PRURITUS

REACTIONS (2)
  - Poor quality sleep [Recovered/Resolved]
  - Restlessness [Recovered/Resolved]
